FAERS Safety Report 10771798 (Version 1)
Quarter: 2015Q1

REPORT INFORMATION
  Report Type: Report from Study
  Country: RU (occurrence: RU)
  Receive Date: 20150206
  Receipt Date: 20150206
  Transmission Date: 20150721
  Serious: Yes (Hospitalization)
  Sender: FDA-Public Use
  Company Number: PHHO2014RU007649

PATIENT
  Age: 9 Year
  Sex: Female
  Weight: 30 kg

DRUGS (7)
  1. LAMOTRIGINE. [Concomitant]
     Active Substance: LAMOTRIGINE
     Indication: EPILEPSY
     Dosage: 31 MG, BID
     Route: 048
     Dates: start: 20080401
  2. RAD001M [Suspect]
     Active Substance: EVEROLIMUS
     Indication: ASTROCYTOMA, LOW GRADE
     Dosage: 5 MG, QD
     Route: 048
     Dates: start: 20110526, end: 20110614
  3. VALPROIC ACID. [Concomitant]
     Active Substance: VALPROIC ACID
     Indication: EPILEPSY
     Dosage: 375 MG, BID
     Route: 048
     Dates: start: 20061201
  4. RAD001M [Suspect]
     Active Substance: EVEROLIMUS
     Dosage: 6 MG, QD
     Route: 048
     Dates: start: 20110615, end: 20111004
  5. PLACEBO [Suspect]
     Active Substance: UNSPECIFIED INGREDIENT
     Indication: ASTROCYTOMA, LOW GRADE
     Route: 048
     Dates: start: 20100202
  6. RAD001M [Suspect]
     Active Substance: EVEROLIMUS
     Dosage: 6 MG, QD
     Route: 048
     Dates: start: 20120131, end: 20140522
  7. RAD001M [Suspect]
     Active Substance: EVEROLIMUS
     Route: 048
     Dates: start: 20140619

REACTIONS (1)
  - Pneumonia [Recovered/Resolved]

NARRATIVE: CASE EVENT DATE: 20140522
